FAERS Safety Report 13359770 (Version 1)
Quarter: 2017Q1

REPORT INFORMATION
  Report Type: Spontaneous
  Country: US (occurrence: US)
  Receive Date: 20170322
  Receipt Date: 20170322
  Transmission Date: 20170429
  Serious: Yes (Hospitalization)
  Sender: FDA-Public Use
  Company Number: US-PFIZER INC-2017118693

PATIENT
  Age: 44 Year
  Sex: Male
  Weight: 73 kg

DRUGS (1)
  1. RAPAMUNE [Suspect]
     Active Substance: SIROLIMUS
     Indication: RENAL TRANSPLANT
     Dosage: 2 MG, 1X/DAY
     Route: 048
     Dates: start: 20131115, end: 201703

REACTIONS (3)
  - Malaise [Unknown]
  - Sinusitis [Recovering/Resolving]
  - Spontaneous cerebrospinal fluid leak syndrome [Recovering/Resolving]

NARRATIVE: CASE EVENT DATE: 20170301
